FAERS Safety Report 22007222 (Version 1)
Quarter: 2023Q1

REPORT INFORMATION
  Report Type: Spontaneous
  Country: US (occurrence: US)
  Receive Date: 20230217
  Receipt Date: 20230217
  Transmission Date: 20230417
  Serious: No
  Sender: FDA-Public Use
  Company Number: US-BEH-2023155392

PATIENT
  Sex: Female
  Weight: 58.05 kg

DRUGS (1)
  1. HIZENTRA [Suspect]
     Active Substance: HUMAN IMMUNOGLOBULIN G
     Dosage: 25 MILLILITER
     Route: 065

REACTIONS (2)
  - Infusion site pruritus [Unknown]
  - Infusion site pain [Unknown]
